FAERS Safety Report 24319047 (Version 3)
Quarter: 2024Q3

REPORT INFORMATION
  Report Type: Spontaneous
  Country: PR (occurrence: PR)
  Receive Date: 20240913
  Receipt Date: 20240930
  Transmission Date: 20241017
  Serious: Yes (Life-Threatening, Hospitalization, Other)
  Sender: BRISTOL MYERS SQUIBB
  Company Number: PR-BRISTOL-MYERS SQUIBB COMPANY-2024-145815

PATIENT
  Age: 79 Year
  Sex: Male
  Weight: 88.45 kg

DRUGS (1)
  1. REVLIMID [Suspect]
     Active Substance: LENALIDOMIDE
     Indication: Plasma cell myeloma
     Dosage: TAKE ONE CAPSULE DAILY FOR 21 DAYS EVERY 28 DAYS.
     Route: 048
     Dates: start: 202212

REACTIONS (4)
  - Blood glucose decreased [Not Recovered/Not Resolved]
  - Respiratory distress [Not Recovered/Not Resolved]
  - Hypertension [Not Recovered/Not Resolved]
  - Myocardial infarction [Not Recovered/Not Resolved]

NARRATIVE: CASE EVENT DATE: 20240911
